FAERS Safety Report 7932837-6 (Version None)
Quarter: 2011Q4

REPORT INFORMATION
  Report Type: 
  Country: None (occurrence: None)
  Receive Date: 20111122
  Receipt Date: 20111115
  Transmission Date: 20120403
  Serious: Yes (Other)
  Sender: FDA-Public Use
  Company Number: US-PFIZER INC-2011281553

PATIENT
  Age: 57 Year
  Sex: Male

DRUGS (3)
  1. NORVASC [Suspect]
     Dosage: UNK
     Dates: start: 20110817, end: 20111011
  2. CATAPRES [Concomitant]
  3. EDARBI [Suspect]
     Dosage: 80 MG, UNK
     Dates: start: 20110817, end: 20111011

REACTIONS (2)
  - HYPOTENSION [None]
  - RENAL IMPAIRMENT [None]
